FAERS Safety Report 4685677-8 (Version None)
Quarter: 2005Q2

REPORT INFORMATION
  Report Type: 
  Country: None (occurrence: None)
  Receive Date: 20050608
  Receipt Date: 20050519
  Transmission Date: 20051028
  Serious: Yes (Other)
  Sender: FDA-Public Use
  Company Number: 8009457

PATIENT
  Sex: Male

DRUGS (2)
  1. KEPPRA [Suspect]
     Indication: TUBEROUS SCLEROSIS
  2. KEPPRA [Suspect]
     Indication: TUBEROUS SCLEROSIS

REACTIONS (2)
  - NEUTROPENIA [None]
  - UNEVALUABLE EVENT [None]
